FAERS Safety Report 25957028 (Version 2)
Quarter: 2025Q4

REPORT INFORMATION
  Report Type: Spontaneous
  Country: CA (occurrence: CA)
  Receive Date: 20251024
  Receipt Date: 20251214
  Transmission Date: 20260117
  Serious: Yes (Death)
  Sender: TAIHO ONCOLOGY INC
  Company Number: CA-TAIHOP-2025-011546

PATIENT
  Sex: Male

DRUGS (1)
  1. INQOVI [Suspect]
     Active Substance: CEDAZURIDINE\DECITABINE
     Indication: Myelodysplastic syndrome
     Dosage: 135 MG (DECITABINE 35 MG AND CEDAZURIDINE 100 MG); FREQUENCY AND LAST CYCLE UNKNOWN
     Route: 048

REACTIONS (1)
  - Disease progression [Fatal]
